FAERS Safety Report 10917952 (Version 1)
Quarter: 2015Q1

REPORT INFORMATION
  Report Type: Spontaneous
  Country: US (occurrence: US)
  Receive Date: 20150316
  Receipt Date: 20150316
  Transmission Date: 20150721
  Serious: No
  Sender: FDA-Public Use
  Company Number: US-BAYER-2015-043086

PATIENT
  Age: 69 Year
  Sex: Male

DRUGS (1)
  1. ALEVE [Suspect]
     Active Substance: NAPROXEN SODIUM
     Indication: SWELLING
     Dosage: 2 DF, PRN
     Route: 048
     Dates: start: 201502

REACTIONS (2)
  - Therapeutic response unexpected [Unknown]
  - Medication error [Unknown]

NARRATIVE: CASE EVENT DATE: 201502
